FAERS Safety Report 10346082 (Version 1)
Quarter: 2014Q3

REPORT INFORMATION
  Report Type: Spontaneous
  Country: FR (occurrence: FR)
  Receive Date: 20140728
  Receipt Date: 20140728
  Transmission Date: 20150326
  Serious: Yes (Hospitalization, Other)
  Sender: FDA-Public Use
  Company Number: FR-BRISTOL-MYERS SQUIBB COMPANY-21221908

PATIENT
  Age: 89 Year
  Sex: Male

DRUGS (3)
  1. COUMADINE [Suspect]
     Active Substance: WARFARIN SODIUM
     Indication: ARRHYTHMIA
     Route: 048
     Dates: end: 20140407
  2. CALCIPARINE [Suspect]
     Active Substance: HEPARIN CALCIUM
     Indication: ARRHYTHMIA
     Dosage: RECHALLENGE: 0.2 ML/12HRS
     Route: 058
     Dates: start: 20140326, end: 20140410
  3. KARDEGIC [Suspect]
     Active Substance: ASPIRIN LYSINE
     Indication: ARTERIAL DISORDER
     Dosage: INTERRUPTED: 17APR14
     Route: 048

REACTIONS (8)
  - Fall [Unknown]
  - Renal failure acute [Unknown]
  - Abnormal behaviour [Unknown]
  - Normochromic normocytic anaemia [Unknown]
  - C-reactive protein increased [Recovered/Resolved]
  - Muscle haemorrhage [Unknown]
  - White blood cell count increased [Recovered/Resolved]
  - Haematoma [Recovering/Resolving]

NARRATIVE: CASE EVENT DATE: 2013
